FAERS Safety Report 8258938-3 (Version None)
Quarter: 2012Q2

REPORT INFORMATION
  Report Type: 
  Country: None (occurrence: None)
  Receive Date: 20120404
  Receipt Date: 20120326
  Transmission Date: 20120825
  Serious: Yes (Hospitalization)
  Sender: FDA-Public Use
  Company Number: BR-ROCHE-1031852

PATIENT
  Sex: Female
  Weight: 86 kg

DRUGS (3)
  1. ACTEMRA [Suspect]
     Indication: RHEUMATOID ARTHRITIS
     Route: 042
     Dates: start: 20110601, end: 20111001
  2. AMLODIPINE BESYLATE [Concomitant]
  3. ATENOLOL [Concomitant]

REACTIONS (3)
  - IMPAIRED HEALING [None]
  - FALL [None]
  - WOUND [None]
